FAERS Safety Report 8414759-X (Version None)
Quarter: 2012Q2

REPORT INFORMATION
  Report Type: 
  Country: None (occurrence: None)
  Receive Date: 20120606
  Receipt Date: 20120531
  Transmission Date: 20120825
  Serious: Yes (Other)
  Sender: FDA-Public Use
  Company Number: US-AMGEN-USASP2012034062

PATIENT
  Sex: Female

DRUGS (2)
  1. VIACTIV                            /01483701/ [Concomitant]
     Dosage: 1500 MG, UNK
  2. PROLIA [Suspect]
     Indication: OSTEOPOROSIS POSTMENOPAUSAL
     Dosage: UNK UNK, Q12MO

REACTIONS (4)
  - STOMATITIS [None]
  - BLOOD 1,25-DIHYDROXYCHOLECALCIFEROL INCREASED [None]
  - SYSTEMIC LUPUS ERYTHEMATOSUS [None]
  - MORPHOEA [None]
